FAERS Safety Report 6233844-4 (Version None)
Quarter: 2009Q2

REPORT INFORMATION
  Report Type: 
  Country: None (occurrence: None)
  Receive Date: 20090618
  Receipt Date: 20090501
  Transmission Date: 20091009
  Serious: No
  Sender: FDA-Public Use
  Company Number: A0781671A

PATIENT
  Age: 94 Year
  Sex: Female

DRUGS (5)
  1. PROMACTA [Suspect]
     Dosage: 50MG PER DAY
     Route: 048
     Dates: start: 20090401
  2. LYRICA [Concomitant]
  3. XANAX [Concomitant]
  4. TYLENOL (CAPLET) [Concomitant]
  5. BLOOD PRESSURE MEDICATION [Concomitant]

REACTIONS (1)
  - PLATELET COUNT INCREASED [None]
